FAERS Safety Report 4814988-8 (Version None)
Quarter: 2005Q4

REPORT INFORMATION
  Report Type: 
  Country: None (occurrence: None)
  Receive Date: 20051026
  Receipt Date: 20051013
  Transmission Date: 20060501
  Serious: No
  Sender: FDA-Public Use
  Company Number: FR_050806953

PATIENT
  Age: 59 Year
  Sex: Male

DRUGS (5)
  1. ALIMTA [Suspect]
     Indication: NON-SMALL CELL LUNG CANCER
     Dates: start: 20050729
  2. ASCORBIC ACID W/FOLIC ACID/IRON/VITAMIN B12 [Concomitant]
  3. FOLIC ACID [Concomitant]
  4. STEROIDS [Concomitant]
  5. ZOFRAN [Concomitant]

REACTIONS (2)
  - URTICARIA LOCALISED [None]
  - VOMITING [None]
